FAERS Safety Report 14716879 (Version 2)
Quarter: 2018Q2

REPORT INFORMATION
  Report Type: Spontaneous
  Country: JP (occurrence: JP)
  Receive Date: 20180404
  Receipt Date: 20180423
  Transmission Date: 20180711
  Serious: Yes (Other)
  Sender: FDA-Public Use
  Company Number: JP-BIOGEN-2018BI00548748

PATIENT
  Sex: Male

DRUGS (2)
  1. AVONEX [Suspect]
     Active Substance: INTERFERON BETA-1A
     Indication: GASTROINTESTINAL MELANOMA
     Dosage: 300 UNITS/DAY, DAYS 1-10
     Route: 065
  2. DACARBAZINE. [Concomitant]
     Active Substance: DACARBAZINE
     Indication: GASTROINTESTINAL MELANOMA
     Dosage: 1000MG/M^2, DAY1
     Route: 065

REACTIONS (2)
  - Metastatic malignant melanoma [Unknown]
  - Intentional product use issue [Unknown]
